FAERS Safety Report 6881383-X (Version None)
Quarter: 2010Q3

REPORT INFORMATION
  Report Type: 
  Country: None (occurrence: None)
  Receive Date: 20100728
  Receipt Date: 20100728
  Transmission Date: 20110219
  Serious: Yes (Hospitalization)
  Sender: FDA-Public Use
  Company Number: None

PATIENT
  Sex: Male
  Weight: 85.4 kg

DRUGS (6)
  1. PEG-L- ASPARAGINASE (PEGASPARGASE, ONCOSPAR) [Suspect]
     Dosage: 5275 IU
     Dates: end: 20100717
  2. PREDNISONE [Suspect]
     Dosage: 1080 MG
     Dates: end: 20100723
  3. VINCRISTINE SULFATE [Suspect]
     Dosage: 4 MG
     Dates: end: 20100721
  4. CYTARABINE [Suspect]
     Dosage: 70 MG
     Dates: end: 20100713
  5. DAUNORUBICIN HCL [Suspect]
     Dosage: 106 MG
     Dates: end: 20100721
  6. METHOTREXATE [Suspect]
     Dosage: 15 MG
     Dates: end: 20100721

REACTIONS (1)
  - HYPERGLYCAEMIA [None]
